FAERS Safety Report 21592871 (Version 5)
Quarter: 2023Q2

REPORT INFORMATION
  Report Type: Report from Study
  Country: US (occurrence: US)
  Receive Date: 20221114
  Receipt Date: 20230403
  Transmission Date: 20230722
  Serious: Yes (Other)
  Sender: FDA-Public Use
  Company Number: US-002147023-NVSC2022US255633

PATIENT
  Sex: Female

DRUGS (1)
  1. KESIMPTA [Suspect]
     Active Substance: OFATUMUMAB
     Indication: Primary progressive multiple sclerosis
     Dosage: UNK
     Route: 065

REACTIONS (7)
  - Primary progressive multiple sclerosis [Unknown]
  - Vertigo [Unknown]
  - Limb discomfort [Unknown]
  - Increased tendency to bruise [Unknown]
  - Headache [Unknown]
  - Dizziness [Unknown]
  - Asthenia [Unknown]
